FAERS Safety Report 17435252 (Version 3)
Quarter: 2021Q1

REPORT INFORMATION
  Report Type: Spontaneous
  Country: IL (occurrence: IL)
  Receive Date: 20200219
  Receipt Date: 20210301
  Transmission Date: 20210419
  Serious: Yes (Hospitalization)
  Sender: FDA-Public Use
  Company Number: IL-HORIZON-RAV-0059-2020

PATIENT
  Age: 3 Month
  Sex: Female

DRUGS (2)
  1. GLYCEROL PHENYLBUTYRATE [Suspect]
     Active Substance: GLYCEROL PHENYLBUTYRATE
     Dosage: 1MGX3, DODAGE GRADUALLY REDUCED AFTER 2 DAYS TO 0.8MGX3
     Route: 065
     Dates: start: 20200206
  2. CARBAGLU [Concomitant]
     Active Substance: CARGLUMIC ACID
     Indication: HYPERAMMONAEMIA

REACTIONS (4)
  - Off label use [Unknown]
  - Vomiting [Recovered/Resolved]
  - General physical health deterioration [Unknown]
  - Nausea [Unknown]

NARRATIVE: CASE EVENT DATE: 202002
